FAERS Safety Report 6050276-2 (Version None)
Quarter: 2009Q1

REPORT INFORMATION
  Report Type: 
  Country: None (occurrence: None)
  Receive Date: 20090126
  Receipt Date: 20090114
  Transmission Date: 20090719
  Serious: Yes (Other)
  Sender: FDA-Public Use
  Company Number: FR-AMGEN-US320758

PATIENT
  Sex: Male
  Weight: 63 kg

DRUGS (3)
  1. ENBREL [Suspect]
     Indication: PSORIATIC ARTHROPATHY
     Dosage: 50 MG (FREQUENCY UNKNOWN)
     Route: 058
     Dates: start: 20080310
  2. NEXIUM [Concomitant]
     Dates: start: 20061201
  3. BI-PROFENID [Concomitant]
     Dosage: 2 DOSES TOTAL DAILY
     Route: 048
     Dates: start: 20061201

REACTIONS (1)
  - HYDROCELE [None]
